FAERS Safety Report 4974061-5 (Version None)
Quarter: 2006Q2

REPORT INFORMATION
  Report Type: 
  Country: None (occurrence: None)
  Receive Date: 20060417
  Receipt Date: 20060411
  Transmission Date: 20061013
  Serious: Yes (Other)
  Sender: FDA-Public Use
  Company Number: US-GLAXOSMITHKLINE-A0601381A

PATIENT
  Age: 35 Year
  Sex: Male

DRUGS (10)
  1. WELLBUTRIN XL [Suspect]
     Indication: DEPRESSION
     Route: 048
     Dates: start: 20051001, end: 20060301
  2. COZAAR [Concomitant]
  3. KLONOPIN [Concomitant]
  4. KETEK [Concomitant]
  5. TRIAMTERENE [Concomitant]
  6. HYDROCHLOROTHIAZIDE [Concomitant]
  7. ISOSORBIDE MONONITRATE [Concomitant]
  8. MEPHYTON [Concomitant]
  9. PROPRANOLOL [Concomitant]
  10. AMBIEN [Concomitant]

REACTIONS (7)
  - AMNESIA [None]
  - DEMENTIA ALZHEIMER'S TYPE [None]
  - DRUG INEFFECTIVE [None]
  - EPISTAXIS [None]
  - LOSS OF CONSCIOUSNESS [None]
  - NIGHTMARE [None]
  - OVERDOSE [None]
